FAERS Safety Report 9461399 (Version 1)
Quarter: 2013Q3

REPORT INFORMATION
  Report Type: Spontaneous
  Country: US (occurrence: US)
  Receive Date: 20130816
  Receipt Date: 20130816
  Transmission Date: 20140515
  Serious: No
  Sender: FDA-Public Use
  Company Number: US-009507513-1308USA005984

PATIENT
  Sex: 0

DRUGS (1)
  1. AZASITE [Suspect]
     Dosage: UNK
     Route: 047
     Dates: start: 20130726

REACTIONS (4)
  - Inappropriate schedule of drug administration [Unknown]
  - Poor quality drug administered [Unknown]
  - Liquid product physical issue [Unknown]
  - No adverse event [Unknown]
